FAERS Safety Report 5566830-8 (Version None)
Quarter: 2007Q4

REPORT INFORMATION
  Report Type: 
  Country: None (occurrence: None)
  Receive Date: 20071219
  Receipt Date: 20071210
  Transmission Date: 20080405
  Serious: Yes (Hospitalization)
  Sender: FDA-Public Use
  Company Number: B0500289A

PATIENT
  Age: 57 Year
  Sex: Male

DRUGS (6)
  1. ZOPHREN [Suspect]
     Indication: PROPHYLAXIS OF NAUSEA AND VOMITING
     Route: 042
     Dates: start: 20070626, end: 20070626
  2. PRIMPERAN INJ [Suspect]
     Indication: PROPHYLAXIS OF NAUSEA AND VOMITING
     Route: 042
     Dates: start: 20070627, end: 20070627
  3. ELOXATIN [Suspect]
     Indication: COLON CANCER
     Route: 042
     Dates: start: 20070626, end: 20070626
  4. ELVORINE [Suspect]
     Indication: COLON CANCER
     Route: 048
     Dates: start: 20070626, end: 20070626
  5. FLUOROURACIL [Suspect]
     Indication: COLON CANCER
     Route: 042
     Dates: start: 20070626, end: 20070627
  6. PRIMPERAN INJ [Suspect]
     Route: 048
     Dates: start: 20070627, end: 20070628

REACTIONS (3)
  - DYSPHAGIA [None]
  - LARYNGEAL OEDEMA [None]
  - TORTICOLLIS [None]
